FAERS Safety Report 7788705-6 (Version None)
Quarter: 2011Q3

REPORT INFORMATION
  Report Type: 
  Country: None (occurrence: None)
  Receive Date: 20110928
  Receipt Date: 20110922
  Transmission Date: 20111222
  Serious: Yes (Congenital Anomaly, Other)
  Sender: FDA-Public Use
  Company Number: GER/GER/11/0021304

PATIENT
  Sex: Male
  Weight: 3.57 kg

DRUGS (2)
  1. CITALOPRAM HYDROBROMIDE [Suspect]
     Indication: DEPRESSION
     Dosage: 20 MG, 0 TO 10 GW, TRANSPLACENTAL
     Route: 064
  2. FOLIC ACID [Concomitant]

REACTIONS (5)
  - HAEMANGIOMA CONGENITAL [None]
  - MATERNAL DRUGS AFFECTING FOETUS [None]
  - ATRIAL SEPTAL DEFECT [None]
  - CAESAREAN SECTION [None]
  - UMBILICAL CORD AROUND NECK [None]
